FAERS Safety Report 9686371 (Version 1)
Quarter: 2013Q4

REPORT INFORMATION
  Report Type: Spontaneous
  Country: IT (occurrence: IT)
  Receive Date: 20131113
  Receipt Date: 20131113
  Transmission Date: 20140711
  Serious: Yes (Disabling)
  Sender: FDA-Public Use
  Company Number: IT-BRISTOL-MYERS SQUIBB COMPANY-19803774

PATIENT
  Age: 76 Year
  Sex: Female

DRUGS (3)
  1. GLUCOPHAGE TABS [Suspect]
     Indication: TYPE 1 DIABETES MELLITUS
     Route: 048
     Dates: start: 20130101, end: 20130807
  2. LANTUS [Suspect]
     Indication: TYPE 1 DIABETES MELLITUS
     Route: 058
     Dates: start: 20130101, end: 20130807
  3. ENAPREN [Concomitant]
     Route: 048

REACTIONS (1)
  - Hypoglycaemic coma [Recovering/Resolving]
